FAERS Safety Report 5772995-5 (Version None)
Quarter: 2008Q2

REPORT INFORMATION
  Report Type: 
  Country: None (occurrence: None)
  Receive Date: 20080611
  Receipt Date: 20080527
  Transmission Date: 20081010
  Serious: Yes (Hospitalization)
  Sender: FDA-Public Use
  Company Number: 2008000603

PATIENT
  Age: 66 Year
  Sex: Female
  Weight: 70.3 kg

DRUGS (2)
  1. TARCEVA [Suspect]
     Indication: NON-SMALL CELL LUNG CANCER
     Dosage: 150 MG, QD, ORAL
     Route: 048
     Dates: start: 20080228, end: 20080313
  2. BEVACIZUMAB) [Suspect]
     Dosage: 1125, Q3W
     Dates: start: 20070921

REACTIONS (5)
  - ABDOMINAL PAIN [None]
  - ANOREXIA [None]
  - ILEUS [None]
  - NAUSEA [None]
  - VOMITING [None]
